FAERS Safety Report 10877598 (Version 1)
Quarter: 2015Q1

REPORT INFORMATION
  Report Type: Spontaneous
  Country: US (occurrence: US)
  Receive Date: 20150302
  Receipt Date: 20150302
  Transmission Date: 20150721
  Serious: Yes (Other)
  Sender: FDA-Public Use
  Company Number: US-CIPLA LTD.-2015US01394

PATIENT

DRUGS (3)
  1. CARBOPLATIN. [Suspect]
     Active Substance: CARBOPLATIN
     Indication: NEOPLASM
     Dosage: AUC 5 (DAY 1) ON A 28-DAY CYCLE
  2. PACLITAXEL. [Suspect]
     Active Substance: PACLITAXEL
     Indication: NEOPLASM
     Dosage: 80 MG/M2 (DAYS 1, 8, AND 15) ON A 28-DAY CYCLE
  3. BUPARLISIB HYDROCHLORIDE [Suspect]
     Active Substance: BUPARLISIB HYDROCHLORIDE
     Indication: NEOPLASM
     Dosage: 80 MG, QD

REACTIONS (1)
  - Anhedonia [Unknown]
